FAERS Safety Report 7883669-9 (Version None)
Quarter: 2011Q4

REPORT INFORMATION
  Report Type: 
  Country: None (occurrence: None)
  Receive Date: 20111102
  Receipt Date: 20111028
  Transmission Date: 20120403
  Serious: Yes (Other)
  Sender: FDA-Public Use
  Company Number: US-PFIZER INC-2011264660

PATIENT
  Sex: Female
  Weight: 83.9 kg

DRUGS (12)
  1. CARVEDILOL [Concomitant]
     Dosage: 6.25 MG, 2X/DAY
  2. PLAVIX [Concomitant]
     Dosage: 75 MG, 1X/DAY
  3. GLIPIZIDE [Suspect]
  4. ACETYLSALICYLIC ACID [Concomitant]
     Dosage: UNK
  5. GLIPIZIDE [Suspect]
  6. SIMVASTATIN [Concomitant]
     Dosage: 20 MG, 1X/DAY
  7. GLIPIZIDE [Suspect]
     Dosage: 2.5 MG, 2X/DAY
     Route: 048
     Dates: start: 20090101, end: 20090101
  8. GLIPIZIDE [Suspect]
     Indication: CARDIAC DISORDER
  9. ENALAPRIL [Concomitant]
     Dosage: 2.5 MG, 2X/DAY
  10. GLIPIZIDE [Suspect]
     Indication: DIABETES MELLITUS
     Dosage: 2.5 MG, 2X/DAY
     Route: 048
     Dates: start: 20081201, end: 20090101
  11. GLIPIZIDE [Suspect]
     Indication: BLOOD GLUCOSE ABNORMAL
     Dosage: UNK
  12. LASIX [Concomitant]
     Dosage: 40 MG, 2X/DAY

REACTIONS (2)
  - CARDIAC DISORDER [None]
  - DIARRHOEA [None]
